FAERS Safety Report 11269332 (Version 1)
Quarter: 2015Q3

REPORT INFORMATION
  Report Type: Spontaneous
  Country: KR (occurrence: KR)
  Receive Date: 20150714
  Receipt Date: 20150714
  Transmission Date: 20151125
  Serious: Yes (Hospitalization)
  Sender: FDA-Public Use
  Company Number: KR-AMGEN-KORCT2015069114

PATIENT
  Age: 71 Year
  Sex: Female
  Weight: 68.4 kg

DRUGS (18)
  1. RITUXIMAB [Concomitant]
     Active Substance: RITUXIMAB
     Dosage: 656.25 MG, UNK
     Route: 042
     Dates: start: 20150303, end: 20150303
  2. CYCLOPHOSPHAMIDE. [Concomitant]
     Active Substance: CYCLOPHOSPHAMIDE
     Dosage: 984.38 MG, UNK
     Route: 042
     Dates: start: 20150204, end: 20150204
  3. DOXORUBICIN [Concomitant]
     Active Substance: DOXORUBICIN
     Dosage: 65.63 MG, UNK
     Route: 042
     Dates: start: 20150204, end: 20150204
  4. PREDNISOLONE. [Concomitant]
     Active Substance: PREDNISOLONE
     Dosage: 60 MG, UNK
     Route: 048
     Dates: start: 20150401, end: 20150401
  5. NEULASTA [Suspect]
     Active Substance: PEGFILGRASTIM
     Dosage: 6 MG, 1X/3WEEKS
     Route: 058
     Dates: start: 20150304, end: 20150304
  6. PREDNISOLONE. [Concomitant]
     Active Substance: PREDNISOLONE
     Dosage: 60 MG, UNK
     Route: 048
     Dates: start: 20150204, end: 20150204
  7. NEULASTA [Suspect]
     Active Substance: PEGFILGRASTIM
     Dosage: 6 MG, 1X/3WEEKS
     Route: 058
     Dates: start: 20150402, end: 20150402
  8. CYCLOPHOSPHAMIDE. [Concomitant]
     Active Substance: CYCLOPHOSPHAMIDE
     Dosage: 984.38 MG, UNK
     Route: 042
     Dates: start: 20150303, end: 20150303
  9. VINCRISTINE [Concomitant]
     Active Substance: VINCRISTINE
     Dosage: 2 MG, UNK
     Route: 042
     Dates: start: 20150204, end: 20150204
  10. VINCRISTINE [Concomitant]
     Active Substance: VINCRISTINE
     Dosage: 2 MG, UNK
     Route: 042
     Dates: start: 20150303, end: 20150303
  11. NEULASTA [Suspect]
     Active Substance: PEGFILGRASTIM
     Indication: FEBRILE NEUTROPENIA
     Dosage: 6 MG, 1X/3WEEKS
     Route: 058
     Dates: start: 20150205, end: 20150205
  12. CYCLOPHOSPHAMIDE. [Concomitant]
     Active Substance: CYCLOPHOSPHAMIDE
     Dosage: 961.88 MG, UNK
     Route: 042
     Dates: start: 20150401, end: 20150401
  13. RITUXIMAB [Concomitant]
     Active Substance: RITUXIMAB
     Dosage: 656.25 MG, UNK
     Route: 042
     Dates: start: 20150204, end: 20150204
  14. RITUXIMAB [Concomitant]
     Active Substance: RITUXIMAB
     Dosage: 641.25 MG, UNK
     Route: 042
     Dates: start: 20150401, end: 20150401
  15. VINCRISTINE [Concomitant]
     Active Substance: VINCRISTINE
     Dosage: 2 MG, UNK
     Route: 042
     Dates: start: 20150401, end: 20150401
  16. DOXORUBICIN [Concomitant]
     Active Substance: DOXORUBICIN
     Dosage: 64.13 MG, UNK
     Route: 042
     Dates: start: 20150401, end: 20150401
  17. DOXORUBICIN [Concomitant]
     Active Substance: DOXORUBICIN
     Dosage: 65.63 MG, UNK
     Route: 042
     Dates: start: 20150303, end: 20150303
  18. PREDNISOLONE. [Concomitant]
     Active Substance: PREDNISOLONE
     Dosage: 60 MG, UNK
     Route: 048
     Dates: start: 20150303, end: 20150303

REACTIONS (1)
  - Chronic sinusitis [Recovered/Resolved]

NARRATIVE: CASE EVENT DATE: 20150407
